FAERS Safety Report 8099362-6 (Version None)
Quarter: 2012Q1

REPORT INFORMATION
  Report Type: 
  Country: None (occurrence: None)
  Receive Date: 20120129
  Receipt Date: 20110915
  Transmission Date: 20120608
  Serious: No
  Sender: FDA-Public Use
  Company Number: US-ABBOTT-11P-163-0855003-00

PATIENT
  Weight: 56.296 kg

DRUGS (9)
  1. HUMIRA [Suspect]
     Indication: RHEUMATOID ARTHRITIS
     Dates: start: 20110201
  2. ROPINIROLE [Suspect]
     Indication: RESTLESS LEGS SYNDROME
  3. CRESTOR [Concomitant]
     Indication: BLOOD CHOLESTEROL INCREASED
  4. VITAMIN TAB [Concomitant]
     Indication: VITAMIN SUPPLEMENTATION
  5. ZOLPIDEM [Concomitant]
     Indication: INSOMNIA
  6. LOSARTAN POTASSIUM [Concomitant]
     Indication: HYPERTENSION
  7. LISINOPRIL AND HYDROCHLOROTHIAZIDE [Concomitant]
     Indication: HYPERTENSION
  8. PREDNISONE TAB [Concomitant]
     Indication: RHEUMATOID ARTHRITIS
  9. ADVAIR DISKUS 100/50 [Concomitant]
     Indication: CHRONIC OBSTRUCTIVE PULMONARY DISEASE

REACTIONS (3)
  - VAGINAL PROLAPSE [None]
  - DYSURIA [None]
  - NAUSEA [None]
